FAERS Safety Report 5684168-5 (Version None)
Quarter: 2008Q1

REPORT INFORMATION
  Report Type: 
  Country: None (occurrence: None)
  Receive Date: 20080328
  Receipt Date: 20070924
  Transmission Date: 20080703
  Serious: No
  Sender: FDA-Public Use
  Company Number: US-AMGEN-KDL244606

PATIENT
  Sex: Female

DRUGS (5)
  1. NEULASTA [Suspect]
     Indication: CHEMOTHERAPY
     Dates: start: 20070907
  2. CYTOXAN [Concomitant]
     Dates: start: 20070906
  3. ADRIAMYCIN PFS [Concomitant]
     Dates: start: 20070906
  4. XANAX [Concomitant]
  5. ZANTAC [Concomitant]

REACTIONS (3)
  - DRY EYE [None]
  - EYE SWELLING [None]
  - HYPERSENSITIVITY [None]
